FAERS Safety Report 6976943-1 (Version None)
Quarter: 2010Q3

REPORT INFORMATION
  Report Type: 
  Country: None (occurrence: None)
  Receive Date: 20100910
  Receipt Date: 20090505
  Transmission Date: 20110219
  Serious: No
  Sender: FDA-Public Use
  Company Number: US-WYE-H09229409

PATIENT
  Age: 49 Year
  Sex: Female
  Weight: 108.96 kg

DRUGS (5)
  1. PRISTIQ [Suspect]
     Indication: DEPRESSION
     Route: 048
     Dates: start: 20090503
  2. FLEXERIL [Concomitant]
  3. PREMPRO [Concomitant]
  4. LORAZEPAM [Concomitant]
  5. ACIPHEX [Concomitant]

REACTIONS (5)
  - ENURESIS [None]
  - FEELING JITTERY [None]
  - HEADACHE [None]
  - NASAL CONGESTION [None]
  - TREMOR [None]
